FAERS Safety Report 8341695-X (Version None)
Quarter: 2012Q2

REPORT INFORMATION
  Report Type: 
  Country: None (occurrence: None)
  Receive Date: 20120507
  Receipt Date: 20120502
  Transmission Date: 20120825
  Serious: Yes (Other)
  Sender: FDA-Public Use
  Company Number: GB-PFIZER INC-2012107649

PATIENT
  Sex: Female

DRUGS (4)
  1. FUROSEMIDE [Suspect]
     Indication: DIURETIC THERAPY
     Dosage: 20 MG, UNK
  2. INDAPAMIDE [Suspect]
     Indication: BLOOD PRESSURE
     Dosage: 1.5 MG, UNK
  3. INDAPAMIDE [Suspect]
     Dosage: 2.5 MG, UNK
  4. SPIRONOLACTONE [Suspect]
     Indication: BLOOD POTASSIUM
     Dosage: 25 MG, UNK

REACTIONS (4)
  - POLLAKIURIA [None]
  - GOUT [None]
  - HYPERTENSION [None]
  - WEIGHT INCREASED [None]
